FAERS Safety Report 6175491-9 (Version None)
Quarter: 2009Q2

REPORT INFORMATION
  Report Type: 
  Country: None (occurrence: None)
  Receive Date: 20090430
  Receipt Date: 20080416
  Transmission Date: 20091009
  Serious: Yes (Hospitalization)
  Sender: FDA-Public Use
  Company Number: PHO-2007-051 FUP1

PATIENT
  Age: 66 Year
  Sex: Female

DRUGS (1)
  1. PHOTOFRIN [Suspect]
     Indication: BILIARY NEOPLASM
     Dosage: 106MG, IV; 1 ADMINISTRATION
     Route: 042
     Dates: start: 20070721

REACTIONS (5)
  - BLOOD BILIRUBIN INCREASED [None]
  - CHILLS [None]
  - DEVICE RELATED INFECTION [None]
  - HYPOTENSION [None]
  - SEPSIS [None]
